FAERS Safety Report 9206996 (Version 1)
Quarter: 2013Q2

REPORT INFORMATION
  Report Type: Spontaneous
  Country: GB (occurrence: GB)
  Receive Date: 20130403
  Receipt Date: 20130403
  Transmission Date: 20140414
  Serious: Yes (Life-Threatening, Other)
  Sender: FDA-Public Use
  Company Number: GB-B.I. PHARMACEUTICALS,INC./RIDGEFIELD-2013-UK-00829UK

PATIENT
  Age: 67 Year
  Sex: Male
  Weight: 70 kg

DRUGS (8)
  1. PRADAXA [Suspect]
     Route: 048
  2. ASPIRIN [Concomitant]
     Dosage: 75 MG
  3. ANTIBIOTICS [Concomitant]
  4. BISOPROLOL [Concomitant]
     Dosage: 3.75 MG
  5. GLICLAZIDE [Concomitant]
  6. METFORMIN [Concomitant]
     Dosage: 750 MG
  7. ROSUVASTATIN [Concomitant]
  8. SITAGLIPTIN [Concomitant]
     Dosage: 100 MG

REACTIONS (5)
  - Respiratory failure [Unknown]
  - Exercise tolerance decreased [Unknown]
  - Haemoptysis [Unknown]
  - Productive cough [Unknown]
  - Dyspnoea [Unknown]
